FAERS Safety Report 15157601 (Version 1)
Quarter: 2018Q3

REPORT INFORMATION
  Report Type: Spontaneous
  Country: US (occurrence: US)
  Receive Date: 20180718
  Receipt Date: 20180718
  Transmission Date: 20181010
  Serious: Yes (Other)
  Sender: FDA-Public Use
  Company Number: US-BRISTOL-MYERS SQUIBB COMPANY-BMS-2018-063967

PATIENT
  Sex: Male

DRUGS (1)
  1. COUMADIN [Suspect]
     Active Substance: WARFARIN SODIUM
     Indication: AORTIC VALVE REPLACEMENT
     Dosage: UNAVAILABLE
     Route: 065

REACTIONS (4)
  - International normalised ratio fluctuation [Unknown]
  - Gastrointestinal disorder [Unknown]
  - Arthropod bite [Unknown]
  - Polymyalgia rheumatica [Unknown]
